FAERS Safety Report 12322487 (Version 1)
Quarter: 2016Q2

REPORT INFORMATION
  Report Type: Spontaneous
  Country: US (occurrence: None)
  Receive Date: 20160429
  Receipt Date: 20160429
  Transmission Date: 20160815
  Serious: No
  Sender: FDA-Public Use
  Company Number: None

PATIENT
  Sex: Male

DRUGS (1)
  1. STELARA [Suspect]
     Active Substance: USTEKINUMAB
     Indication: MYOCARDITIS
     Dosage: 45 MG WEEK 0 AND 4 THEN EVERY 12 WEEKS SQ
     Route: 058
     Dates: start: 20160405

REACTIONS (4)
  - Headache [None]
  - Dry mouth [None]
  - Dizziness [None]
  - Swelling face [None]
